FAERS Safety Report 11759996 (Version 1)
Quarter: 2015Q4

REPORT INFORMATION
  Report Type: Spontaneous
  Country: US (occurrence: US)
  Receive Date: 20151120
  Receipt Date: 20151120
  Transmission Date: 20160304
  Serious: No
  Sender: FDA-Public Use
  Company Number: US-ELI_LILLY_AND_COMPANY-US201210008407

PATIENT
  Sex: Female

DRUGS (1)
  1. FORTEO [Suspect]
     Active Substance: TERIPARATIDE
     Indication: OSTEOPOROSIS
     Dosage: 20 UG, QD
     Dates: start: 20120817

REACTIONS (20)
  - Malaise [Unknown]
  - Feeling hot [Unknown]
  - Fear [Unknown]
  - Sleep disorder due to a general medical condition [Not Recovered/Not Resolved]
  - Pain in extremity [Not Recovered/Not Resolved]
  - Gait disturbance [Unknown]
  - Dizziness [Recovered/Resolved]
  - Cold sweat [Recovered/Resolved]
  - Abdominal discomfort [Recovered/Resolved]
  - Drug dose omission [Recovered/Resolved]
  - Bone pain [Not Recovered/Not Resolved]
  - Bone disorder [Unknown]
  - Arthralgia [Not Recovered/Not Resolved]
  - Anxiety [Unknown]
  - Presyncope [Recovered/Resolved]
  - Asthenia [Unknown]
  - Hyperhidrosis [Recovered/Resolved]
  - Crying [Unknown]
  - Intentional overdose [Recovered/Resolved]
  - Pain [Not Recovered/Not Resolved]
